FAERS Safety Report 5071359-X (Version None)
Quarter: 2006Q3

REPORT INFORMATION
  Report Type: 
  Country: None (occurrence: None)
  Receive Date: 20060804
  Receipt Date: 20060717
  Transmission Date: 20061208
  Serious: Yes (Hospitalization)
  Sender: FDA-Public Use
  Company Number: FR-BAYER-200610667BFR

PATIENT
  Age: 45 Year
  Sex: Female

DRUGS (18)
  1. NIMOTOP [Suspect]
     Indication: UNEVALUABLE EVENT
     Route: 042
     Dates: start: 20060619, end: 20060624
  2. IOMERON-150 [Suspect]
     Indication: VASCULAR TEST
     Route: 042
     Dates: start: 20060619, end: 20060619
  3. VISIPAQUE [Suspect]
     Indication: THERAPEUTIC EMBOLISATION
     Route: 042
     Dates: start: 20060619, end: 20060619
  4. DEPAKENE [Suspect]
     Indication: UNEVALUABLE EVENT
     Route: 042
     Dates: start: 20060619, end: 20060623
  5. ACUPAN [Suspect]
     Indication: UNEVALUABLE EVENT
     Route: 042
     Dates: start: 20060619, end: 20060622
  6. MORPHINE [Concomitant]
     Indication: UNEVALUABLE EVENT
     Route: 065
     Dates: start: 20060619, end: 20060620
  7. HEPARIN [Concomitant]
     Indication: UNEVALUABLE EVENT
     Route: 065
     Dates: start: 20060619, end: 20060621
  8. LOVENOX [Concomitant]
     Indication: UNEVALUABLE EVENT
     Route: 065
     Dates: start: 20060621, end: 20060623
  9. ORGARAN [Concomitant]
     Indication: UNEVALUABLE EVENT
     Route: 065
     Dates: start: 20060624, end: 20060703
  10. ACETAMINOPHEN [Concomitant]
     Indication: UNEVALUABLE EVENT
     Route: 065
     Dates: start: 20060619, end: 20060623
  11. ZOPHREN [Concomitant]
     Indication: UNEVALUABLE EVENT
     Route: 065
     Dates: start: 20060620, end: 20060622
  12. OMEPRAZOLE [Concomitant]
     Indication: UNEVALUABLE EVENT
     Route: 065
     Dates: start: 20060619, end: 20060621
  13. OMEPRAZOLE [Concomitant]
     Route: 065
     Dates: start: 20060627
  14. CERNEVIT-12 [Concomitant]
     Indication: UNEVALUABLE EVENT
     Route: 065
     Dates: start: 20060619, end: 20060621
  15. DIPRIVAN [Concomitant]
     Indication: UNEVALUABLE EVENT
     Route: 065
     Dates: start: 20060619
  16. MANNITOL [Concomitant]
     Indication: UNEVALUABLE EVENT
     Route: 065
     Dates: start: 20060621
  17. TRANXENE [Concomitant]
     Indication: UNEVALUABLE EVENT
     Route: 065
     Dates: start: 20060621, end: 20060623
  18. ALMOGRAN [Concomitant]
     Indication: MIGRAINE
     Route: 065

REACTIONS (4)
  - ACUTE GENERALISED EXANTHEMATOUS PUSTULOSIS [None]
  - DERMATITIS BULLOUS [None]
  - ERYTHEMA [None]
  - RASH PUSTULAR [None]
